FAERS Safety Report 4824686-2 (Version None)
Quarter: 2005Q4

REPORT INFORMATION
  Report Type: 
  Country: None (occurrence: None)
  Receive Date: 20051012
  Receipt Date: 20050830
  Transmission Date: 20060501
  Serious: No
  Sender: FDA-Public Use
  Company Number: 2005S1000188

PATIENT
  Age: 42 Year
  Weight: 76 kg

DRUGS (14)
  1. CUBICIN [Suspect]
     Indication: ARTHRITIS INFECTIVE
     Dosage: 500 MG; Q24H; IV
     Route: 042
     Dates: start: 20050101
  2. ALBUTEROL [Concomitant]
  3. CYCLOBENZAPRINE HCL [Concomitant]
  4. LEVOTHYROXINE SODIUM [Concomitant]
  5. RIFAMPIN [Concomitant]
  6. FUROSEMIDE [Concomitant]
  7. ZOLPIDEM TARTRATE [Concomitant]
  8. POTASSIUM CHLORIDE [Concomitant]
  9. IRON [Concomitant]
  10. ESCITALOPRAM OXALATE [Concomitant]
  11. PANTOPRAZOLE [Concomitant]
  12. NYSTATIN [Concomitant]
  13. SENNA [Concomitant]
  14. VALPROIC ACID [Concomitant]

REACTIONS (1)
  - MUSCLE TWITCHING [None]
